FAERS Safety Report 4898355-7 (Version None)
Quarter: 2006Q1

REPORT INFORMATION
  Report Type: 
  Country: None (occurrence: None)
  Receive Date: 20060131
  Receipt Date: 20060131
  Transmission Date: 20060701
  Serious: No
  Sender: FDA-Public Use
  Company Number: None

PATIENT
  Sex: Male
  Weight: 192 kg

DRUGS (1)
  1. ETHAMBUTOL 300 MG VALEANT [Suspect]
     Indication: TUBERCULOSIS
     Dosage: 300 MG QID -4TIMES/DAY -PO
     Route: 048
     Dates: start: 20050115, end: 20051023

REACTIONS (1)
  - BLINDNESS [None]
